FAERS Safety Report 7951735-5 (Version None)
Quarter: 2011Q4

REPORT INFORMATION
  Report Type: 
  Country: None (occurrence: None)
  Receive Date: 20111201
  Receipt Date: 20111122
  Transmission Date: 20120403
  Serious: Yes (Other)
  Sender: FDA-Public Use
  Company Number: US-BAYER-2011-108088

PATIENT
  Age: 44 Year
  Sex: Female

DRUGS (1)
  1. YASMIN [Suspect]
     Dosage: UNK
     Dates: start: 20030101, end: 20060801

REACTIONS (7)
  - EMOTIONAL DISTRESS [None]
  - ARTERIAL THROMBOSIS [None]
  - COMPARTMENT SYNDROME [None]
  - PAIN [None]
  - ANHEDONIA [None]
  - INJURY [None]
  - FEAR [None]
